FAERS Safety Report 4592925-1 (Version None)
Quarter: 2005Q1

REPORT INFORMATION
  Report Type: 
  Country: None (occurrence: None)
  Receive Date: 20050228
  Receipt Date: 20050225
  Transmission Date: 20050727
  Serious: Yes (Hospitalization, Other)
  Sender: FDA-Public Use
  Company Number: US-GLAXOSMITHKLINE-A0547401A

PATIENT
  Age: 45 Year
  Sex: Female

DRUGS (1)
  1. VALTREX [Suspect]
     Indication: DRUG USE FOR UNKNOWN INDICATION
     Route: 048
     Dates: start: 20050204, end: 20050210

REACTIONS (4)
  - HYPERSENSITIVITY [None]
  - SWOLLEN TONGUE [None]
  - URTICARIA [None]
  - VOMITING [None]
